FAERS Safety Report 14491335 (Version 3)
Quarter: 2018Q2

REPORT INFORMATION
  Report Type: Spontaneous
  Country: DE (occurrence: DE)
  Receive Date: 20180206
  Receipt Date: 20180419
  Transmission Date: 20180711
  Serious: Yes (Hospitalization)
  Sender: FDA-Public Use
  Company Number: PHHY2017DE200115

PATIENT
  Age: 57 Year
  Sex: Female
  Weight: 70 kg

DRUGS (18)
  1. CARBOPLATIN. [Suspect]
     Active Substance: CARBOPLATIN
     Indication: NON-SMALL CELL LUNG CANCER
     Dosage: 750 (6MG-MIN/ML)
     Route: 041
     Dates: start: 20170413
  2. ABRAXANE [Suspect]
     Active Substance: PACLITAXEL
     Indication: NON-SMALL CELL LUNG CANCER
     Dosage: 180 MG/M2, QD
     Route: 041
     Dates: start: 20170413, end: 20170427
  3. FERINJECT [Concomitant]
     Active Substance: FERRIC CARBOXYMALTOSE
     Indication: ANAEMIA
     Dosage: 1000 MG, QD
     Route: 058
     Dates: start: 20170420, end: 20170420
  4. NOVAMINSULFON-RATIOPHARM [Concomitant]
     Active Substance: METAMIZOLE
     Indication: PROPHYLAXIS
     Dosage: 120 DF, QD
     Route: 048
     Dates: start: 20170201
  5. ONDANSETRAN [Concomitant]
     Active Substance: ONDANSETRON HYDROCHLORIDE
     Indication: PROPHYLAXIS
     Dosage: 8 MG, UNK
     Route: 048
  6. GRANISETRON [Concomitant]
     Active Substance: GRANISETRON
     Indication: PROPHYLAXIS
     Dosage: 1 MG, QW
     Route: 041
     Dates: start: 20170413
  7. ABRAXANE [Suspect]
     Active Substance: PACLITAXEL
     Dosage: 100 MG/M2, QD
     Route: 041
     Dates: start: 20170413, end: 20170427
  8. ABRAXANE [Suspect]
     Active Substance: PACLITAXEL
     Dosage: 145 MG/M2, QD
     Route: 041
     Dates: start: 20170713, end: 20170901
  9. ABRAXANE [Suspect]
     Active Substance: PACLITAXEL
     Dosage: 180 MG/M2, QD
     Route: 041
     Dates: start: 20170504, end: 201705
  10. ABRAXANE [Suspect]
     Active Substance: PACLITAXEL
     Dosage: 80 MG/M2, QD
     Route: 041
     Dates: start: 20170530
  11. FERINJECT [Concomitant]
     Active Substance: FERRIC CARBOXYMALTOSE
     Dosage: 1000 MG, QD
     Route: 058
     Dates: start: 20170713, end: 20170713
  12. MCP-RATIOPHARM [Concomitant]
     Active Substance: METOCLOPRAMIDE HYDROCHLORIDE
     Indication: PROPHYLAXIS
     Dosage: 10 MG, UNK
     Route: 048
  13. ABRAXANE [Suspect]
     Active Substance: PACLITAXEL
     Dosage: 145 MG/M2, QD
     Route: 041
     Dates: start: 20170629
  14. PANTOPRAZOL BETA [Concomitant]
     Indication: PROPHYLAXIS
     Dosage: 40 MG, QD
     Route: 048
     Dates: start: 20170201
  15. ABRAXANE [Suspect]
     Active Substance: PACLITAXEL
     Dosage: 80 MG/M2, QD
     Route: 065
     Dates: start: 20170825, end: 20170901
  16. LYRICA [Concomitant]
     Active Substance: PREGABALIN
     Indication: PROPHYLAXIS
     Dosage: 100 MG, QD
     Route: 048
     Dates: start: 20170201
  17. DEXAMETHASONE. [Concomitant]
     Active Substance: DEXAMETHASONE
     Indication: PROPHYLAXIS
     Dosage: 20 MG, UNK
     Route: 041
  18. MST [Concomitant]
     Active Substance: MORPHINE SULFATE\NALTREXONE HYDROCHLORIDE
     Indication: PROPHYLAXIS
     Dosage: 60 MG, QD
     Route: 048
     Dates: start: 20170201

REACTIONS (17)
  - Anaemia [Recovered/Resolved]
  - Eyelid oedema [Recovered/Resolved]
  - Neutrophil count decreased [Recovered/Resolved]
  - Leukopenia [Recovered/Resolved]
  - Polyneuropathy [Recovered/Resolved]
  - Anaemia [Recovered/Resolved]
  - Thrombocytopenia [Recovered/Resolved]
  - Diarrhoea [Recovered/Resolved]
  - Thrombocytopenia [Recovered/Resolved]
  - Leukopenia [Recovered/Resolved]
  - Neutrophil count decreased [Recovered/Resolved]
  - Neutrophil count decreased [Recovered/Resolved]
  - Leukopenia [Recovered/Resolved]
  - Neutrophil count decreased [Recovered/Resolved]
  - Anaemia [Recovered/Resolved]
  - Fatigue [Recovered/Resolved]
  - Epistaxis [Recovered/Resolved]

NARRATIVE: CASE EVENT DATE: 20170420
